FAERS Safety Report 10043187 (Version 2)
Quarter: 2014Q1

REPORT INFORMATION
  Report Type: Spontaneous
  Country: IN (occurrence: IN)
  Receive Date: 20140328
  Receipt Date: 20140328
  Transmission Date: 20141002
  Serious: Yes (Hospitalization)
  Sender: FDA-Public Use
  Company Number: IN-009507513-1403IND002448

PATIENT
  Age: 51 Year
  Sex: Male
  Weight: 53 kg

DRUGS (1)
  1. JANUMET [Suspect]
     Dosage: 50/500MG, 2TAB/DAY
     Route: 048

REACTIONS (5)
  - Hypotension [Recovered/Resolved]
  - Burning sensation [Recovered/Resolved]
  - Dizziness [Recovered/Resolved]
  - Vomiting [Recovered/Resolved]
  - Asthenia [Not Recovered/Not Resolved]
